FAERS Safety Report 6157903-X (Version None)
Quarter: 2009Q2

REPORT INFORMATION
  Report Type: 
  Country: None (occurrence: None)
  Receive Date: 20090417
  Receipt Date: 20090407
  Transmission Date: 20091009
  Serious: Yes (Other)
  Sender: FDA-Public Use
  Company Number: FR-WYE-H08071909

PATIENT
  Sex: Female

DRUGS (5)
  1. INIPOMP [Suspect]
     Dosage: UNKNOWN
     Route: 065
     Dates: start: 20070101, end: 20081208
  2. TAMOXIFEN CITRATE [Suspect]
     Dosage: 20 MG, FREQUENCY UNSPECIFIED
     Route: 048
     Dates: start: 20080401, end: 20090317
  3. PREDNISOLONE SODIUM SULFOBENZOATE [Concomitant]
     Dosage: UNSPECIFIED
     Route: 048
     Dates: start: 20070101
  4. HERCEPTIN [Suspect]
     Indication: ADENOCARCINOMA
     Dosage: 150 MG, FREQUENCY UNSPECIFIED
     Route: 042
     Dates: start: 20071114, end: 20081208
  5. TAXOTERE [Concomitant]
     Indication: ADENOCARCINOMA
     Dosage: 160 MG, FREQUENCY UNSPECIFIED
     Route: 042
     Dates: start: 20071114, end: 20080410

REACTIONS (1)
  - INTERSTITIAL LUNG DISEASE [None]
